FAERS Safety Report 4423947-9 (Version None)
Quarter: 2004Q3

REPORT INFORMATION
  Report Type: 
  Country: None (occurrence: None)
  Receive Date: 20040805
  Receipt Date: 20040723
  Transmission Date: 20050211
  Serious: Yes (Hospitalization)
  Sender: FDA-Public Use
  Company Number: 2004011018

PATIENT
  Age: 48 Year
  Sex: Female

DRUGS (2)
  1. LIPITOR [Suspect]
     Indication: DYSLIPIDAEMIA
     Dosage: 10 MG (10 MG 1 IN 1 D ORAL)
     Route: 048
     Dates: start: 20010501
  2. AMLODIPINE [Concomitant]

REACTIONS (1)
  - MYOCARDIAL INFARCTION [None]
